FAERS Safety Report 12277028 (Version 1)
Quarter: 2016Q2

REPORT INFORMATION
  Report Type: Spontaneous
  Country: US (occurrence: None)
  Receive Date: 20160415
  Receipt Date: 20160415
  Transmission Date: 20160815
  Serious: Yes (Disabling)
  Sender: FDA-Public Use
  Company Number: None

PATIENT
  Age: 62 Year
  Sex: Female
  Weight: 68.04 kg

DRUGS (5)
  1. BAYER ASPIRIN [Concomitant]
     Active Substance: ASPIRIN
  2. EDARBI [Suspect]
     Active Substance: AZILSARTAN KAMEDOXOMIL
     Indication: HYPERTENSION
     Dosage: 1 TABLET(S) IN THE MORNING TAKEN BY MOUTH
     Route: 048
     Dates: start: 20160101, end: 20160412
  3. LOSARTAN. [Concomitant]
     Active Substance: LOSARTAN
  4. COENZYME Q10 [Concomitant]
     Active Substance: UBIDECARENONE
  5. CENTRUM SILVER VITAMINS [Concomitant]

REACTIONS (3)
  - Renal impairment [None]
  - Therapy cessation [None]
  - Urine output increased [None]

NARRATIVE: CASE EVENT DATE: 20160401
